FAERS Safety Report 25507125 (Version 1)
Quarter: 2025Q3

REPORT INFORMATION
  Report Type: Spontaneous
  Country: CN (occurrence: CN)
  Receive Date: 20250702
  Receipt Date: 20250702
  Transmission Date: 20251021
  Serious: Yes (Hospitalization, Disabling)
  Sender: BEIGENE
  Company Number: CN-BEIGENE-BGN-2025-010288

PATIENT
  Age: 60 Year
  Weight: 54 kg

DRUGS (18)
  1. TISLELIZUMAB [Suspect]
     Active Substance: TISLELIZUMAB
     Indication: Neoplasm malignant
  2. TISLELIZUMAB [Suspect]
     Active Substance: TISLELIZUMAB
     Route: 041
  3. TISLELIZUMAB [Suspect]
     Active Substance: TISLELIZUMAB
     Route: 041
  4. TISLELIZUMAB [Suspect]
     Active Substance: TISLELIZUMAB
  5. PACLITAXEL [Suspect]
     Active Substance: PACLITAXEL
     Indication: Neoplasm malignant
  6. PACLITAXEL [Suspect]
     Active Substance: PACLITAXEL
     Route: 041
  7. PACLITAXEL [Suspect]
     Active Substance: PACLITAXEL
     Route: 041
  8. PACLITAXEL [Suspect]
     Active Substance: PACLITAXEL
  9. CISPLATIN [Suspect]
     Active Substance: CISPLATIN
     Indication: Neoplasm malignant
     Dosage: 60 MILLIGRAM, QD
  10. CISPLATIN [Suspect]
     Active Substance: CISPLATIN
     Dosage: 60 MILLIGRAM, QD
     Route: 041
  11. CISPLATIN [Suspect]
     Active Substance: CISPLATIN
     Dosage: 60 MILLIGRAM, QD
     Route: 041
  12. CISPLATIN [Suspect]
     Active Substance: CISPLATIN
     Dosage: 60 MILLIGRAM, QD
  13. SODIUM CHLORIDE [Concomitant]
     Active Substance: SODIUM CHLORIDE
     Indication: Vehicle solution use
     Dosage: 400 MILLILITER, QD
  14. SODIUM CHLORIDE [Concomitant]
     Active Substance: SODIUM CHLORIDE
     Dosage: 400 MILLILITER, QD
     Route: 041
  15. SODIUM CHLORIDE [Concomitant]
     Active Substance: SODIUM CHLORIDE
     Dosage: 100 MILLILITER, QD
     Route: 041
  16. SODIUM CHLORIDE [Concomitant]
     Active Substance: SODIUM CHLORIDE
     Dosage: 100 MILLILITER, QD
  17. SODIUM CHLORIDE [Concomitant]
     Active Substance: SODIUM CHLORIDE
     Dosage: 250 MILLILITER, QD
     Route: 041
  18. SODIUM CHLORIDE [Concomitant]
     Active Substance: SODIUM CHLORIDE
     Dosage: 250 MILLILITER, QD

REACTIONS (8)
  - Nausea [Recovering/Resolving]
  - Vomiting [Recovering/Resolving]
  - Alopecia [Recovering/Resolving]
  - Palmar-plantar erythrodysaesthesia syndrome [Recovering/Resolving]
  - Anaemia [Recovering/Resolving]
  - Electrolyte imbalance [Recovering/Resolving]
  - Renal injury [Recovering/Resolving]
  - Prescribed overdose [Unknown]
